FAERS Safety Report 8467434-X (Version None)
Quarter: 2012Q2

REPORT INFORMATION
  Report Type: 
  Country: None (occurrence: None)
  Receive Date: 20120323
  Receipt Date: 20111123
  Transmission Date: 20120825
  Serious: Yes (Hospitalization)
  Sender: FDA-Public Use
  Company Number: 163-21880-11082056

PATIENT
  Age: 90 Year
  Sex: Female

DRUGS (2)
  1. REVLIMID [Suspect]
     Indication: MYELODYSPLASTIC SYNDROME
     Dosage: 5 MG, DAILY X 21 DAYS, PO ; 5 MG,, DAILY X 3 WEEKS EVERY 4 WEEKS, PO
     Route: 048
     Dates: start: 20101221, end: 20110721
  2. REVLIMID [Suspect]
     Indication: MYELODYSPLASTIC SYNDROME
     Dosage: 5 MG, DAILY X 21 DAYS, PO ; 5 MG,, DAILY X 3 WEEKS EVERY 4 WEEKS, PO
     Route: 048
     Dates: start: 20110818

REACTIONS (1)
  - INTESTINAL OBSTRUCTION [None]
